FAERS Safety Report 6862207-3 (Version None)
Quarter: 2010Q3

REPORT INFORMATION
  Report Type: 
  Country: None (occurrence: None)
  Receive Date: 20100716
  Receipt Date: 20100713
  Transmission Date: 20110219
  Serious: Yes (Other)
  Sender: FDA-Public Use
  Company Number: TRP_07109_2010

PATIENT
  Sex: Male

DRUGS (2)
  1. INFERGEN [Suspect]
     Indication: HEPATITIS C
     Dosage: 15 ?G QD SUBCUTANEOUS
     Route: 058
     Dates: start: 20100101
  2. RIBAVARIN [Suspect]
     Indication: HEPATITIS C
     Dosage: 2 DF QD ORAL
     Route: 048
     Dates: start: 20100101

REACTIONS (6)
  - ARTHRALGIA [None]
  - FATIGUE [None]
  - INFLUENZA LIKE ILLNESS [None]
  - MYALGIA [None]
  - PAIN IN EXTREMITY [None]
  - SLUGGISHNESS [None]
